FAERS Safety Report 8094196-0 (Version None)
Quarter: 2012Q1

REPORT INFORMATION
  Report Type: 
  Country: None (occurrence: None)
  Receive Date: 20120130
  Receipt Date: 20120130
  Transmission Date: 20120608
  Serious: Yes (Other)
  Sender: FDA-Public Use
  Company Number: None

PATIENT
  Age: 34 Year
  Sex: Female
  Weight: 58.967 kg

DRUGS (1)
  1. VERAPAMIL EXTENDED-RELEASE [Suspect]
     Indication: EXTRASYSTOLES
     Dosage: 240 MG
     Route: 048

REACTIONS (1)
  - GALACTORRHOEA [None]
